FAERS Safety Report 9709946 (Version 1)
Quarter: 2013Q4

REPORT INFORMATION
  Report Type: Spontaneous
  Country: FR (occurrence: FR)
  Receive Date: 20131126
  Receipt Date: 20131126
  Transmission Date: 20140711
  Serious: Yes (Hospitalization)
  Sender: FDA-Public Use
  Company Number: FR-ASTRAZENECA-2013SE85703

PATIENT
  Age: 17578 Day
  Sex: Female
  Weight: 71 kg

DRUGS (14)
  1. MOPRAL [Suspect]
     Route: 048
     Dates: start: 20130710, end: 20130720
  2. PYLERA [Suspect]
     Dates: start: 20130710, end: 20130720
  3. TRIATEC [Concomitant]
  4. PARIET [Concomitant]
  5. CACIT D3 [Concomitant]
  6. LEVOTHYROX [Concomitant]
  7. FORLAX [Concomitant]
  8. CORTANCYL [Concomitant]
     Dosage: 5 TO 15 MG DAILY
     Dates: start: 2012, end: 2013
  9. MABTHERA [Concomitant]
     Dosage: 375 MG/M2 4 INFUSIONS
     Dates: start: 201208
  10. MABTHERA [Concomitant]
     Dosage: 375 MG/M2 1 INFUSION
     Dates: start: 201210
  11. MABTHERA [Concomitant]
     Dosage: 375 MG/M2 1 INFUSION
     Dates: start: 201302
  12. METRONIDAZOLE [Concomitant]
     Dates: start: 20130710
  13. TETRACYCLINE [Concomitant]
     Dates: start: 20130710
  14. AMLOR [Concomitant]

REACTIONS (1)
  - Influenza like illness [Recovering/Resolving]
